FAERS Safety Report 4733794-6 (Version None)
Quarter: 2005Q3

REPORT INFORMATION
  Report Type: 
  Country: None (occurrence: None)
  Receive Date: 20050729
  Receipt Date: 20050712
  Transmission Date: 20060218
  Serious: Yes (Other)
  Sender: FDA-Public Use
  Company Number: GBS050717876

PATIENT
  Age: 61 Year
  Sex: Male

DRUGS (2)
  1. CIALIS [Suspect]
     Indication: ERECTILE DYSFUNCTION
     Dosage: 20 MG/1 AS NEEDED
     Dates: start: 20050214, end: 20050601
  2. OMEPRAZOLE [Concomitant]

REACTIONS (3)
  - MACULOPATHY [None]
  - VISUAL DISTURBANCE [None]
  - VISUAL FIELD DEFECT [None]
